FAERS Safety Report 6665901-2 (Version None)
Quarter: 2010Q2

REPORT INFORMATION
  Report Type: 
  Country: None (occurrence: None)
  Receive Date: 20100402
  Receipt Date: 20100330
  Transmission Date: 20101027
  Serious: Yes (Other)
  Sender: FDA-Public Use
  Company Number: GR-ROCHE-694322

PATIENT
  Sex: Female

DRUGS (1)
  1. ROACCUTAN [Suspect]
     Indication: ACNE
     Route: 048

REACTIONS (2)
  - HEADACHE [None]
  - OPTIC NEURITIS [None]
